FAERS Safety Report 22203209 (Version 1)
Quarter: 2023Q2

REPORT INFORMATION
  Report Type: Spontaneous
  Country: US (occurrence: None)
  Receive Date: 20230412
  Receipt Date: 20230412
  Transmission Date: 20230721
  Serious: No
  Sender: FDA-Public Use
  Company Number: None

PATIENT
  Sex: 0

DRUGS (1)
  1. ATOMOXETINE [Suspect]
     Active Substance: ATOMOXETINE

REACTIONS (7)
  - Asthenia [None]
  - Decreased appetite [None]
  - Attention deficit hyperactivity disorder [None]
  - Disease recurrence [None]
  - Feeling abnormal [None]
  - Distractibility [None]
  - Memory impairment [None]
